FAERS Safety Report 23514572 (Version 4)
Quarter: 2024Q2

REPORT INFORMATION
  Report Type: Spontaneous
  Country: US (occurrence: US)
  Receive Date: 20240212
  Receipt Date: 20240402
  Transmission Date: 20240716
  Serious: Yes (Other)
  Sender: FDA-Public Use
  Company Number: US-BRISTOL-MYERS SQUIBB COMPANY-2024-022503

PATIENT

DRUGS (2)
  1. ELIQUIS [Suspect]
     Active Substance: APIXABAN
     Indication: Product used for unknown indication
     Dates: start: 20210305
  2. ELIQUIS [Suspect]
     Active Substance: APIXABAN
     Dates: start: 2023, end: 20240210

REACTIONS (22)
  - Contusion [Unknown]
  - Diarrhoea [Unknown]
  - Constipation [Unknown]
  - Abdominal distension [Unknown]
  - Dizziness [Unknown]
  - Epistaxis [Unknown]
  - Swelling of eyelid [Unknown]
  - Erythema of eyelid [Unknown]
  - Eye pain [Unknown]
  - Dyspnoea [Unknown]
  - Fatigue [Unknown]
  - Urticaria [Unknown]
  - Rash [Unknown]
  - Pruritus [Unknown]
  - Flushing [Unknown]
  - Anaemia [Unknown]
  - Alopecia [Unknown]
  - Headache [Unknown]
  - Hypotension [Unknown]
  - Depressed level of consciousness [Unknown]
  - Irritable bowel syndrome [Unknown]
  - Heart rate increased [Unknown]
